FAERS Safety Report 11573700 (Version 1)
Quarter: 2015Q3

REPORT INFORMATION
  Report Type: Report from Study
  Country: DE (occurrence: DE)
  Receive Date: 20150929
  Receipt Date: 20150929
  Transmission Date: 20151125
  Serious: Yes (Hospitalization, Other)
  Sender: FDA-Public Use
  Company Number: DE-ABBVIE-15P-062-1333736-00

PATIENT
  Sex: Female

DRUGS (3)
  1. FERRUM VERLA [Concomitant]
     Indication: ANAEMIA OF PREGNANCY
     Route: 065
  2. VITAMIN B12 [Concomitant]
     Active Substance: CYANOCOBALAMIN
     Indication: ANAEMIA OF PREGNANCY
     Route: 065
  3. HUMIRA [Suspect]
     Active Substance: ADALIMUMAB
     Indication: CROHN^S DISEASE
     Route: 058
     Dates: start: 20131105, end: 201504

REACTIONS (5)
  - Complication of pregnancy [Unknown]
  - Exposure during pregnancy [Unknown]
  - Anaemia of pregnancy [Unknown]
  - Cervix disorder [Unknown]
  - Hospitalisation [Unknown]
